FAERS Safety Report 9857558 (Version 1)
Quarter: 2014Q1

REPORT INFORMATION
  Report Type: Spontaneous
  Country: US (occurrence: US)
  Receive Date: 20140131
  Receipt Date: 20140131
  Transmission Date: 20141002
  Serious: Yes (Hospitalization)
  Sender: FDA-Public Use
  Company Number: GXBR2014US000570

PATIENT
  Age: 65 Year
  Sex: Male
  Weight: 130 kg

DRUGS (18)
  1. LORATADINE [Concomitant]
     Indication: HYPERSENSITIVITY
     Dosage: UNK DF, UNK
  2. LORATADINE [Concomitant]
     Indication: ANGIOEDEMA
  3. CHLORPHENAMINE W/PHENYLEPHRINE [Concomitant]
     Indication: HYPERSENSITIVITY
     Dosage: UNK DF, UNK
  4. CHLORPHENAMINE W/PHENYLEPHRINE [Concomitant]
     Indication: ANGIOEDEMA
  5. INSULIN HUMULIN 70/30 [Concomitant]
     Indication: DIABETES MELLITUS
     Dosage: UNK DF, UNK
  6. ATORVASTATIN [Concomitant]
     Indication: HYPERLIPIDAEMIA
     Dosage: UNK DF, UNK
  7. METOPROLOL [Concomitant]
     Indication: HYPERTENSION
     Dosage: UNK DF, UNK
  8. METFORMIN [Concomitant]
     Indication: DIABETES MELLITUS
     Dosage: UNK DF, UNK
  9. LEVOTHYROXINE [Concomitant]
     Indication: HYPOTHYROIDISM
     Dosage: UNK DF, UNK
  10. FLUNISOLIDE [Concomitant]
     Indication: HYPERSENSITIVITY
     Dosage: UNK DF, UNK
     Route: 045
  11. FLUNISOLIDE [Concomitant]
     Indication: NASAL CONGESTION
  12. VISTARIL [Concomitant]
     Indication: HYPERSENSITIVITY
     Dosage: UNK DF, UNK
  13. VISTARIL [Concomitant]
     Indication: ANGIOEDEMA
  14. ALBUTEROL [Concomitant]
     Dosage: UNK DF, UNK
     Route: 055
  15. AMLODIPINE [Concomitant]
     Indication: HYPERTENSION
     Dosage: UNK DF, UNK
  16. FLUOXETINE CAPSULES [Suspect]
     Indication: DEPRESSION
     Dosage: 80 MG, QD
     Route: 048
     Dates: start: 2012
  17. FLUOXETINE CAPSULES [Suspect]
     Dosage: 80 MG, QD
  18. FLUOXETINE CAPSULES [Suspect]
     Dosage: 80 MG, QD

REACTIONS (4)
  - Angioedema [Recovered/Resolved]
  - Face oedema [Recovered/Resolved]
  - Oedema peripheral [Recovered/Resolved]
  - Oxygen saturation decreased [Recovered/Resolved]
